FAERS Safety Report 10190665 (Version 3)
Quarter: 2015Q4

REPORT INFORMATION
  Report Type: Report from Study
  Country: US (occurrence: US)
  Receive Date: 20140523
  Receipt Date: 20151123
  Transmission Date: 20160304
  Serious: Yes (Hospitalization, Other)
  Sender: FDA-Public Use
  Company Number: US-BIOGENIDEC-191012

PATIENT
  Age: 65 Year
  Sex: Female
  Weight: 56 kg

DRUGS (16)
  1. MULTIVITAMINS [Concomitant]
     Active Substance: VITAMINS
  2. VITAMIN D [Concomitant]
     Active Substance: CHOLECALCIFEROL
  3. AVONEX [Suspect]
     Active Substance: INTERFERON BETA-1A
     Indication: MULTIPLE SCLEROSIS
     Route: 030
     Dates: start: 19981201, end: 20031215
  4. CITRACAL [Concomitant]
     Active Substance: CALCIUM CITRATE
  5. CLONAZEPAM. [Concomitant]
     Active Substance: CLONAZEPAM
  6. AVONEX [Suspect]
     Active Substance: INTERFERON BETA-1A
     Indication: MULTIPLE SCLEROSIS
     Route: 030
     Dates: start: 20031222, end: 20140201
  7. PERCOCET [Concomitant]
     Active Substance: ACETAMINOPHEN\OXYCODONE HYDROCHLORIDE
  8. CALCIUM [Concomitant]
     Active Substance: CALCIUM
  9. ZOLPIDEM [Concomitant]
     Active Substance: ZOLPIDEM\ZOLPIDEM TARTRATE
  10. ATIVAN [Concomitant]
     Active Substance: LORAZEPAM
  11. SYNTHROID [Concomitant]
     Active Substance: LEVOTHYROXINE SODIUM
     Indication: HYPOTHYROIDISM
  12. FISH OIL [Concomitant]
     Active Substance: FISH OIL
  13. CYMBALTA [Concomitant]
     Active Substance: DULOXETINE HYDROCHLORIDE
  14. METHOTREXATE [Concomitant]
     Active Substance: METHOTREXATE
  15. ODORLESS GARLIC [Concomitant]
  16. MACROBID [Concomitant]
     Active Substance: NITROFURANTOIN\NITROFURANTOIN MONOHYDRATE

REACTIONS (11)
  - Depression [Unknown]
  - Visual impairment [Not Recovered/Not Resolved]
  - Headache [Unknown]
  - Fatigue [Unknown]
  - Hysterectomy [Recovered/Resolved]
  - Radical cystectomy [Unknown]
  - Breast cancer metastatic [Recovered/Resolved]
  - Flushing [Unknown]
  - Osteoporosis [Not Recovered/Not Resolved]
  - Muscular weakness [Not Recovered/Not Resolved]
  - Influenza like illness [Recovered/Resolved]

NARRATIVE: CASE EVENT DATE: 1999
